FAERS Safety Report 6249050-3 (Version None)
Quarter: 2009Q2

REPORT INFORMATION
  Report Type: 
  Country: None (occurrence: None)
  Receive Date: 20090624
  Receipt Date: 20090611
  Transmission Date: 20091009
  Serious: Yes (Hospitalization)
  Sender: FDA-Public Use
  Company Number: 230083K09IRL

PATIENT
  Age: 37 Year
  Sex: Female

DRUGS (1)
  1. REBIF [Suspect]
     Dosage: 44 MCG
     Dates: start: 20051010, end: 20090301

REACTIONS (5)
  - DYSPEPSIA [None]
  - DYSPHAGIA [None]
  - FALL [None]
  - MALAISE [None]
  - NAUSEA [None]
